FAERS Safety Report 15191529 (Version 1)
Quarter: 2018Q3

REPORT INFORMATION
  Report Type: Spontaneous
  Country: GB (occurrence: GB)
  Receive Date: 20180724
  Receipt Date: 20180724
  Transmission Date: 20181010
  Serious: Yes (Death)
  Sender: FDA-Public Use
  Company Number: GB-ALLERGAN-1836303US

PATIENT
  Age: 42 Year
  Sex: Male

DRUGS (1)
  1. ACAMPROSATE CALCIUM ? BP [Suspect]
     Active Substance: ACAMPROSATE CALCIUM
     Indication: ALCOHOLISM
     Dosage: UNK, UNKNOWN
     Route: 065

REACTIONS (2)
  - Hepatic failure [Fatal]
  - Alcoholic liver disease [Fatal]
